FAERS Safety Report 9353201 (Version 1)
Quarter: 2013Q2

REPORT INFORMATION
  Report Type: Spontaneous
  Country: US (occurrence: US)
  Receive Date: 20130618
  Receipt Date: 20130618
  Transmission Date: 20140414
  Serious: No
  Sender: FDA-Public Use
  Company Number: US-PFIZER INC-2013180749

PATIENT
  Sex: Male

DRUGS (2)
  1. LYRICA [Suspect]
     Indication: RESTLESS LEGS SYNDROME
     Dosage: 50 MG DAILY (1.5 HOURS BEFORE SLEEPING)
     Dates: start: 201303
  2. LYRICA [Suspect]
     Dosage: 100MG DAILY (1.5 HOURS BEFORE SLEEPING)
     Dates: start: 2013

REACTIONS (4)
  - Nerve injury [Unknown]
  - Therapeutic response unexpected [Unknown]
  - Off label use [Unknown]
  - Drug effect decreased [Unknown]
